FAERS Safety Report 16499342 (Version 6)
Quarter: 2019Q4

REPORT INFORMATION
  Report Type: Spontaneous
  Country: JP (occurrence: JP)
  Receive Date: 20190701
  Receipt Date: 20191212
  Transmission Date: 20200122
  Serious: Yes (Death, Hospitalization, Disabling, Other)
  Sender: FDA-Public Use
  Company Number: JP-BRISTOL-MYERS SQUIBB COMPANY-BMS-2019-055849

PATIENT
  Age: 57 Year
  Sex: Male
  Weight: 65 kg

DRUGS (4)
  1. SHIGMABITAN [BENFOTIAMINE;CYANOCOBALAMIN;PYRIDOXINE HYDROCHLORIDE] [Concomitant]
     Indication: PRODUCT USED FOR UNKNOWN INDICATION
     Dosage: 1 DOSAGE FORM, Q8H
     Route: 048
  2. LYRICA [Concomitant]
     Active Substance: PREGABALIN
     Indication: PRODUCT USED FOR UNKNOWN INDICATION
     Dosage: 75 MILLIGRAM, QD
     Route: 048
     Dates: start: 20190531
  3. FOLIAMIN [Concomitant]
     Active Substance: FOLIC ACID
     Indication: PRODUCT USED FOR UNKNOWN INDICATION
     Dosage: 5 MILLIGRAM, Q8H
     Route: 048
  4. OPDIVO [Suspect]
     Active Substance: NIVOLUMAB
     Indication: GASTRIC CANCER
     Dosage: 240 MILLIGRAM
     Route: 041
     Dates: start: 20190517, end: 20190517

REACTIONS (12)
  - Rhabdomyolysis [Not Recovered/Not Resolved]
  - Mouth haemorrhage [Unknown]
  - Cerebral haemorrhage [Fatal]
  - Blood pressure systolic increased [Unknown]
  - General physical health deterioration [Unknown]
  - Craniocerebral injury [Unknown]
  - Accident [Unknown]
  - Altered state of consciousness [Unknown]
  - Retinal haemorrhage [Unknown]
  - Subdural haematoma [Fatal]
  - Haematochezia [Unknown]
  - Epistaxis [Unknown]

NARRATIVE: CASE EVENT DATE: 20190531
